FAERS Safety Report 10143698 (Version 1)
Quarter: 2014Q2

REPORT INFORMATION
  Report Type: Spontaneous
  Country: US (occurrence: US)
  Receive Date: 20140430
  Receipt Date: 20140430
  Transmission Date: 20141212
  Serious: No
  Sender: FDA-Public Use
  Company Number: US-PFIZER INC-2014116435

PATIENT
  Age: 79 Year
  Sex: Male

DRUGS (4)
  1. SUTENT [Suspect]
     Indication: RENAL CANCER
     Dosage: 37.5 MG, UNK
     Dates: start: 20131105
  2. BROVANA [Concomitant]
     Dosage: UNK
  3. BUDESONIDE ER [Concomitant]
     Dosage: UNK
  4. NORCO [Concomitant]
     Dosage: UNK

REACTIONS (1)
  - Thrombocytopenia [Unknown]
